FAERS Safety Report 16941600 (Version 3)
Quarter: 2019Q4

REPORT INFORMATION
  Report Type: Report from Study
  Country: US (occurrence: US)
  Receive Date: 20191021
  Receipt Date: 20191202
  Transmission Date: 20200122
  Serious: Yes (Hospitalization, Other)
  Sender: FDA-Public Use
  Company Number: US-BRISTOL-MYERS SQUIBB COMPANY-BMS-2019-100003

PATIENT
  Age: 50 Year
  Sex: Female

DRUGS (1)
  1. NIVOLUMAB [Suspect]
     Active Substance: NIVOLUMAB
     Indication: BREAST CANCER METASTATIC
     Dosage: 480 MILLIGRAM, Q4WK
     Route: 042
     Dates: start: 20190809

REACTIONS (1)
  - Brain oedema [Recovering/Resolving]

NARRATIVE: CASE EVENT DATE: 20191013
